FAERS Safety Report 6282696-5 (Version None)
Quarter: 2009Q3

REPORT INFORMATION
  Report Type: 
  Country: None (occurrence: None)
  Receive Date: 20090722
  Receipt Date: 20090722
  Transmission Date: 20100115
  Serious: Yes (Hospitalization)
  Sender: FDA-Public Use
  Company Number: None

PATIENT
  Age: 59 Year
  Sex: Male

DRUGS (1)
  1. AMITRIPTYLINE HCL [Suspect]
     Indication: PAIN
     Dosage: 25 MG AT BEDTIME PO
     Route: 048
     Dates: start: 20090122, end: 20090122

REACTIONS (6)
  - FALL [None]
  - HAEMORRHAGE INTRACRANIAL [None]
  - PARTIAL SEIZURES [None]
  - REFUSAL OF TREATMENT BY PATIENT [None]
  - SEDATION [None]
  - TRANSIENT ISCHAEMIC ATTACK [None]
